FAERS Safety Report 5928156-X (Version None)
Quarter: 2008Q4

REPORT INFORMATION
  Report Type: 
  Country: None (occurrence: None)
  Receive Date: 20081022
  Receipt Date: 20081022
  Transmission Date: 20090506
  Serious: Yes (Disabling)
  Sender: FDA-Public Use
  Company Number: None

PATIENT
  Age: 17 Year
  Sex: Male
  Weight: 86.1834 kg

DRUGS (1)
  1. CREST PRO HEALTH [Suspect]

REACTIONS (1)
  - TOOTH DISCOLOURATION [None]
